FAERS Safety Report 14531803 (Version 1)
Quarter: 2018Q1

REPORT INFORMATION
  Report Type: Report from Study
  Country: LB (occurrence: LB)
  Receive Date: 20180214
  Receipt Date: 20180214
  Transmission Date: 20180509
  Serious: Yes (Hospitalization, Other)
  Sender: FDA-Public Use
  Company Number: PHHY2018LB014375

PATIENT
  Sex: Male

DRUGS (1)
  1. GLIVEC [Suspect]
     Active Substance: IMATINIB MESYLATE
     Indication: CHRONIC MYELOID LEUKAEMIA
     Dosage: 400 MG, QD (400MG/DAY)
     Route: 065
     Dates: start: 2007

REACTIONS (3)
  - Rib fracture [Recovering/Resolving]
  - Pain [Unknown]
  - Musculoskeletal chest pain [Recovering/Resolving]
